FAERS Safety Report 7204432-8 (Version None)
Quarter: 2010Q4

REPORT INFORMATION
  Report Type: 
  Country: None (occurrence: None)
  Receive Date: 20101220
  Receipt Date: 20101213
  Transmission Date: 20110411
  Serious: Yes (Death, Hospitalization)
  Sender: FDA-Public Use
  Company Number: 110308

PATIENT
  Age: 35 Year
  Sex: Male

DRUGS (2)
  1. AZATHIOPRINE SODIUM [Suspect]
     Indication: CROHN'S DISEASE
     Dosage: 100MG/DAY
  2. INFLIXIMAB [Concomitant]

REACTIONS (8)
  - HODGKIN'S DISEASE NODULAR SCLEROSIS STAGE UNSPECIFIED [None]
  - LOBAR PNEUMONIA [None]
  - METASTASES TO BONE [None]
  - METASTASES TO BONE MARROW [None]
  - METASTASES TO LIVER [None]
  - METASTASES TO SPLEEN [None]
  - MULTI-ORGAN FAILURE [None]
  - SEPTIC SHOCK [None]
